FAERS Safety Report 5354254-8 (Version None)
Quarter: 2007Q2

REPORT INFORMATION
  Report Type: 
  Country: None (occurrence: None)
  Receive Date: 20070612
  Receipt Date: 20070531
  Transmission Date: 20071010
  Serious: Yes (Other)
  Sender: FDA-Public Use
  Company Number: US-ELI_LILLY_AND_COMPANY-US200705007795

PATIENT
  Age: 70 Year
  Sex: Male

DRUGS (4)
  1. HUMULIN N [Suspect]
     Indication: DIABETES MELLITUS
     Dosage: 66 U, EACH MORNING
     Dates: start: 19850101
  2. HUMULIN N [Suspect]
     Dosage: 53 U, EACH EVENING, DINNER
     Dates: start: 19850101
  3. HUMALOG [Suspect]
     Indication: DIABETES MELLITUS
     Dosage: 14 U, EACH MORNING
     Dates: start: 19850101
  4. HUMALOG [Suspect]
     Dosage: 53 U, EACH EVENING, BEDTIME
     Dates: start: 19850101

REACTIONS (3)
  - BLINDNESS [None]
  - CATARACT [None]
  - EYE OPERATION [None]
